FAERS Safety Report 6119772 (Version 18)
Quarter: 2013Q3

REPORT INFORMATION
  Report Type: Spontaneous
  Country: US (occurrence: US)
  Receive Date: 20060831
  Receipt Date: 20130807
  Transmission Date: 20140515
  Serious: Yes (Death, Hospitalization, Other)
  Sender: FDA-Public Use
  Company Number: PHEH2006US10897

PATIENT
  Age: 65 Year
  Sex: Male
  Weight: 98 kg

DRUGS (42)
  1. ZOMETA [Suspect]
     Indication: METASTASES TO BONE
     Dosage: 4 MG, QMO
     Dates: start: 2005, end: 20060410
  2. LASIX [Concomitant]
     Dosage: 20 MG, UNK
  3. CELEBREX [Concomitant]
     Dosage: 200 MG, UNK
  4. ALLOPURINOL [Concomitant]
     Dosage: 300 MG, QD
     Route: 048
  5. CORTICOSTEROID NOS [Concomitant]
     Route: 008
     Dates: start: 200602
  6. SPIRIVA ^PFIZER^ [Concomitant]
     Dosage: 30 MG, UNK
  7. PROTONIX ^WYETH-AYERST^ [Concomitant]
     Dosage: 40 MG, QD
  8. MUCINEX [Concomitant]
  9. MUCINEX [Concomitant]
     Dosage: 10 MG, UNK
  10. AMBIEN [Concomitant]
     Indication: SLEEP DISORDER
     Dosage: 10 MG, UNK
     Route: 048
  11. LUNESTA [Concomitant]
     Dosage: 3 MG, UNK
  12. PERCOCET [Concomitant]
  13. FOLIC ACID [Concomitant]
  14. ASPIRIN [Concomitant]
     Dosage: 81 MG, UNK
  15. ELIGARD [Concomitant]
     Dates: start: 2005
  16. ACCUNEB [Concomitant]
  17. TRELSTAR - SLOW RELEASE [Concomitant]
     Dosage: 11.25 MG, UNK
     Route: 030
  18. MS CONTIN [Concomitant]
  19. DURAGESIC [Concomitant]
     Dosage: 25 UG, UNK
  20. ZOCOR ^MERCK^ [Concomitant]
     Dosage: 40 MG, UNK
  21. HYDROCODONE [Concomitant]
  22. MULTIVITAMINS [Concomitant]
  23. CALCIUM [Concomitant]
  24. CIALIS ^GLAXOSMITHKLINE^ [Concomitant]
     Dosage: 20 MG, UNK
  25. FLONASE [Concomitant]
  26. ABILIFY [Concomitant]
  27. ALTACE [Concomitant]
  28. ATENOLOL [Concomitant]
  29. FLOMAX ^BOEHRINGER INGELHEIM^ [Concomitant]
  30. KETOCONAZOLE [Concomitant]
  31. FENTANYL [Concomitant]
  32. RESTORIL [Concomitant]
  33. ZOLOFT (SERTRALINE HYDROCHLORIDE) [Concomitant]
  34. PREDNISONE [Concomitant]
  35. ALBUTEROL [Concomitant]
  36. PROTONIX ^PHARMACIA^ [Concomitant]
  37. FORADIL                                 /DEN/ [Concomitant]
  38. AFRIN NASAL SPRAY [Concomitant]
  39. SALINE [Concomitant]
  40. SUDAFED [Concomitant]
  41. OMEGA 3 [Concomitant]
  42. LYCOPENE [Concomitant]

REACTIONS (114)
  - Tendon disorder [Unknown]
  - Cyst [Unknown]
  - Spinal column stenosis [Unknown]
  - Back pain [Unknown]
  - Radiculitis lumbosacral [Unknown]
  - Spinal osteoarthritis [Unknown]
  - Bone density decreased [Unknown]
  - Muscular weakness [Unknown]
  - Osteonecrosis of jaw [Unknown]
  - Injury [Unknown]
  - Pain [Unknown]
  - Anxiety [Unknown]
  - Jaw disorder [Unknown]
  - Metastases to bone [Unknown]
  - Musculoskeletal pain [Unknown]
  - Tooth infection [Unknown]
  - Oedema peripheral [Unknown]
  - Pain in extremity [Unknown]
  - Chest pain [Recovered/Resolved]
  - Arthralgia [Not Recovered/Not Resolved]
  - Nocturia [Unknown]
  - Deafness [Unknown]
  - Fall [Unknown]
  - Confusional state [Unknown]
  - Chronic obstructive pulmonary disease [Unknown]
  - Dyspnoea [Unknown]
  - Lung infiltration [Unknown]
  - Skin papilloma [Unknown]
  - Basal cell carcinoma [Unknown]
  - Second primary malignancy [Unknown]
  - Syncope [Unknown]
  - Encephalopathy [Unknown]
  - Cognitive disorder [Unknown]
  - Memory impairment [Unknown]
  - Skin ulcer [Unknown]
  - Major depression [Unknown]
  - Bundle branch block right [Unknown]
  - Sinus tachycardia [Unknown]
  - Gastritis [Unknown]
  - Appendicitis [Unknown]
  - Abdominal pain [Unknown]
  - Nausea [Unknown]
  - Vomiting [Unknown]
  - Diverticulum intestinal [Unknown]
  - Cardiomegaly [Unknown]
  - Pulmonary fibrosis [Unknown]
  - Myoclonus [Unknown]
  - Coronary artery disease [Unknown]
  - Pneumonia [Unknown]
  - Bone cancer [Unknown]
  - Cough [Unknown]
  - Tooth abscess [Unknown]
  - Dental caries [Unknown]
  - Toothache [Unknown]
  - Gingival pain [Unknown]
  - Rhinitis allergic [Unknown]
  - Ear congestion [Unknown]
  - Sinus congestion [Unknown]
  - Contusion [Unknown]
  - Pulmonary congestion [Unknown]
  - Nasal congestion [Unknown]
  - Oropharyngeal pain [Unknown]
  - Localised infection [Unknown]
  - Cellulitis [Unknown]
  - Pyrexia [Unknown]
  - Upper respiratory tract infection [Unknown]
  - Bronchitis [Unknown]
  - Skin lesion [Unknown]
  - Gait disturbance [Unknown]
  - Visual impairment [Unknown]
  - Supraventricular tachycardia [Unknown]
  - Blood cholesterol increased [Unknown]
  - Lung neoplasm malignant [Unknown]
  - Brain neoplasm malignant [Unknown]
  - Dementia Alzheimer^s type [Unknown]
  - Exposed bone in jaw [Unknown]
  - Laceration [Unknown]
  - Stab wound [Unknown]
  - Haemorrhage [Recovered/Resolved]
  - Neoplasm malignant [Unknown]
  - Emphysema [Unknown]
  - Atelectasis [Unknown]
  - Atrioventricular block second degree [Unknown]
  - Haematoma [Unknown]
  - Multiple injuries [Unknown]
  - Arteriosclerosis [Unknown]
  - Arteriosclerosis coronary artery [Unknown]
  - Hypercholesterolaemia [Unknown]
  - Obstructive airways disorder [Unknown]
  - Urinary incontinence [Unknown]
  - Bone lesion [Unknown]
  - Hypoxia [Unknown]
  - Sepsis [Unknown]
  - Renal failure acute [Unknown]
  - Metastases to liver [Unknown]
  - Breast mass [Unknown]
  - Hypothyroidism [Unknown]
  - Hypotension [Unknown]
  - Leukocytosis [Unknown]
  - Pleural effusion [Unknown]
  - Dehydration [Unknown]
  - Mental disorder [Unknown]
  - Conjunctivitis [Unknown]
  - Cardiac failure congestive [Unknown]
  - Urinary tract infection [Unknown]
  - Insomnia [Unknown]
  - Prostate cancer [Fatal]
  - Prostate cancer recurrent [Fatal]
  - Pollakiuria [Fatal]
  - Prostatic obstruction [Fatal]
  - Prostatic specific antigen increased [Fatal]
  - Micturition urgency [Fatal]
  - Joint injury [Unknown]
  - Joint effusion [Unknown]
